FAERS Safety Report 25272476 (Version 1)
Quarter: 2025Q2

REPORT INFORMATION
  Report Type: Spontaneous
  Country: US (occurrence: US)
  Receive Date: 20250506
  Receipt Date: 20250506
  Transmission Date: 20250716
  Serious: No
  Sender: QOL
  Company Number: US-QOL Medical, LLC-2176232

PATIENT
  Age: 16 Year
  Sex: Female
  Weight: 68.18 kg

DRUGS (3)
  1. SUCRAID [Suspect]
     Active Substance: SACROSIDASE
     Dates: start: 20240417
  2. ALBUTEROL SULFATE [Concomitant]
     Active Substance: ALBUTEROL SULFATE
  3. PULMICORT RESPULES [Concomitant]
     Active Substance: BUDESONIDE

REACTIONS (1)
  - Urticaria [Unknown]

NARRATIVE: CASE EVENT DATE: 20240417
